FAERS Safety Report 9898379 (Version 3)
Quarter: 2014Q1

REPORT INFORMATION
  Report Type: Spontaneous
  Country: IT (occurrence: IT)
  Receive Date: 20140214
  Receipt Date: 20140317
  Transmission Date: 20141002
  Serious: Yes (Death)
  Sender: FDA-Public Use
  Company Number: IT-ELI_LILLY_AND_COMPANY-IT201402003016

PATIENT
  Age: 55 Year
  Sex: Female
  Weight: 36 kg

DRUGS (6)
  1. ALIMTA [Suspect]
     Indication: LUNG NEOPLASM MALIGNANT
     Dosage: 500 MG, CYCLICAL
     Route: 042
     Dates: start: 20131104
  2. ALIMTA [Suspect]
     Dosage: 600 MG, EVERY 21 DAYS
     Route: 042
     Dates: start: 20131130
  3. CISPLATIN-TEVA [Suspect]
     Indication: LUNG NEOPLASM MALIGNANT
     Dosage: 70 MG, CYCLICAL
     Route: 042
     Dates: start: 20131104
  4. CISPLATIN-TEVA [Suspect]
     Dosage: 80 MG, EVERY 21 DAYS
     Route: 042
     Dates: start: 20131130
  5. FOLIC ACID [Concomitant]
  6. VITAMIN B12                        /00056201/ [Concomitant]

REACTIONS (4)
  - Cardiopulmonary failure [Fatal]
  - Bone marrow failure [Fatal]
  - Fungal sepsis [Fatal]
  - Clostridium difficile colitis [Fatal]
